FAERS Safety Report 9888555 (Version 1)
Quarter: 2014Q1

REPORT INFORMATION
  Report Type: Spontaneous
  Country: GB (occurrence: GB)
  Receive Date: 20140211
  Receipt Date: 20140211
  Transmission Date: 20141002
  Serious: Yes (Other)
  Sender: FDA-Public Use
  Company Number: PHFR2014GB001378

PATIENT
  Age: 56 Year
  Sex: Male

DRUGS (2)
  1. TERBINAFINE [Suspect]
     Indication: ONYCHOMYCOSIS
     Dosage: 250 MG, QD
     Route: 048
     Dates: start: 20130703, end: 20131001
  2. SILDENAFIL [Concomitant]
     Dosage: UNK UKN, UNK

REACTIONS (1)
  - Epilepsy [Recovering/Resolving]
